FAERS Safety Report 5696081-8 (Version None)
Quarter: 2008Q2

REPORT INFORMATION
  Report Type: 
  Country: None (occurrence: None)
  Receive Date: 20080407
  Receipt Date: 20080326
  Transmission Date: 20081010
  Serious: Yes (Hospitalization)
  Sender: FDA-Public Use
  Company Number: B0514451A

PATIENT
  Age: 78 Year
  Sex: Female

DRUGS (5)
  1. ZOPHREN [Suspect]
     Indication: DRUG USE FOR UNKNOWN INDICATION
     Route: 042
     Dates: start: 20071212, end: 20071213
  2. IRINOTECAN HCL [Suspect]
     Route: 042
     Dates: start: 20071212, end: 20071213
  3. METHYLPREDNISOLONE [Suspect]
     Indication: DRUG USE FOR UNKNOWN INDICATION
     Dosage: 40MG PER DAY
     Route: 042
     Dates: start: 20071212, end: 20071212
  4. ATROPINE [Suspect]
     Indication: DRUG USE FOR UNKNOWN INDICATION
     Route: 042
     Dates: start: 20071212, end: 20071212
  5. FLUOROURACIL [Concomitant]
     Indication: DRUG USE FOR UNKNOWN INDICATION
     Route: 042
     Dates: start: 20071212, end: 20071213

REACTIONS (3)
  - CHILLS [None]
  - ERYTHEMA [None]
  - HYPERTENSION [None]
